FAERS Safety Report 5223225-4 (Version None)
Quarter: 2007Q1

REPORT INFORMATION
  Report Type: 
  Country: None (occurrence: None)
  Receive Date: 20070124
  Receipt Date: 20070108
  Transmission Date: 20070707
  Serious: Yes (Life-Threatening, Hospitalization)
  Sender: FDA-Public Use
  Company Number: DSA_29160_2006

PATIENT
  Age: 18 Year
  Sex: Female

DRUGS (3)
  1. TAVOR [Suspect]
     Dosage: 10 MG ONCE PO
     Route: 048
     Dates: start: 20061214, end: 20061214
  2. DIAZEPAM [Suspect]
     Dosage: 20 MG ONCE PO
     Route: 048
     Dates: start: 20061214, end: 20061214
  3. ALCOHOL [Suspect]
     Dates: start: 20061214, end: 20061214

REACTIONS (8)
  - ALCOHOL USE [None]
  - BLOOD CREATINE PHOSPHOKINASE INCREASED [None]
  - FATIGUE [None]
  - INTENTIONAL OVERDOSE [None]
  - MYDRIASIS [None]
  - SINUS TACHYCARDIA [None]
  - SOMNOLENCE [None]
  - SUICIDE ATTEMPT [None]
